FAERS Safety Report 4742297-4 (Version None)
Quarter: 2005Q3

REPORT INFORMATION
  Report Type: 
  Country: None (occurrence: None)
  Receive Date: 20050811
  Receipt Date: 20050404
  Transmission Date: 20060218
  Serious: No
  Sender: FDA-Public Use
  Company Number: US-GLAXOSMITHKLINE-A0552622A

PATIENT
  Age: 51 Year
  Sex: Female

DRUGS (6)
  1. PAXIL CR [Suspect]
     Dosage: 12.5MG PER DAY
     Route: 048
     Dates: start: 20030101
  2. SOMA [Concomitant]
  3. TOPROL-XL [Concomitant]
  4. VICODIN [Concomitant]
  5. PRAVACHOL [Concomitant]
  6. AMBIEN [Concomitant]

REACTIONS (1)
  - PARAESTHESIA [None]
